FAERS Safety Report 10589846 (Version 1)
Quarter: 2014Q4

REPORT INFORMATION
  Report Type: Spontaneous
  Country: US (occurrence: None)
  Receive Date: 20141117
  Receipt Date: 20141117
  Transmission Date: 20150529
  Serious: No
  Sender: FDA-Public Use
  Company Number: None

PATIENT
  Age: 45 Year
  Sex: Male
  Weight: 72.58 kg

DRUGS (1)
  1. PRAMIPEXOLE DIHYDROCHLORIDE. [Suspect]
     Active Substance: PRAMIPEXOLE DIHYDROCHLORIDE
     Indication: RESTLESS LEGS SYNDROME
     Dosage: 1 PILL ONCE DAILY ORAL
     Route: 048
     Dates: start: 20141103, end: 20141107

REACTIONS (3)
  - Headache [None]
  - Middle insomnia [None]
  - Musculoskeletal stiffness [None]

NARRATIVE: CASE EVENT DATE: 20141106
